FAERS Safety Report 6635849-8 (Version None)
Quarter: 2010Q1

REPORT INFORMATION
  Report Type: 
  Country: None (occurrence: None)
  Receive Date: 20100316
  Receipt Date: 20100305
  Transmission Date: 20100710
  Serious: Yes (Death, Life-Threatening, Hospitalization, Other)
  Sender: FDA-Public Use
  Company Number: GB-JNJFOC-20050606579

PATIENT
  Sex: Female
  Weight: 70 kg

DRUGS (11)
  1. REMICADE [Suspect]
     Indication: RHEUMATOID ARTHRITIS
     Route: 042
  2. PREDNISOLONE [Concomitant]
     Route: 065
  3. OMEPRAZOLE [Concomitant]
     Route: 065
  4. DIDRONEL [Concomitant]
     Route: 065
  5. CALCICHEW [Concomitant]
     Route: 065
  6. SALBUTAMOL [Concomitant]
     Route: 065
  7. AMILORIDE HYDROCHLORIDE [Concomitant]
     Route: 065
  8. QUINAPRIL [Concomitant]
     Route: 065
  9. CHLORTHALIDONE [Concomitant]
     Route: 065
  10. DOXAZOSIN [Concomitant]
     Route: 065
  11. LEFLUNOMIDE [Concomitant]

REACTIONS (5)
  - BRONCHOPNEUMONIA [None]
  - CARDIAC FAILURE CONGESTIVE [None]
  - CELLULITIS [None]
  - DEEP VEIN THROMBOSIS [None]
  - MYOCARDIAL INFARCTION [None]
